FAERS Safety Report 6940319-3 (Version None)
Quarter: 2010Q3

REPORT INFORMATION
  Report Type: 
  Country: None (occurrence: None)
  Receive Date: 20100825
  Receipt Date: 20100811
  Transmission Date: 20110219
  Serious: Yes (Other)
  Sender: FDA-Public Use
  Company Number: US-ELI_LILLY_AND_COMPANY-US201008003542

PATIENT
  Sex: Male

DRUGS (4)
  1. ZYPREXA [Suspect]
     Indication: PSYCHOTIC DISORDER
     Dosage: 20 MG, DAILY (1/D)
  2. SYNTHROID [Concomitant]
     Dosage: 100 UG, UNK
  3. PREDNISONE [Concomitant]
     Dosage: 7.5 MG, UNK
  4. FLORINEF [Concomitant]
     Dosage: 0.5 MG, UNK

REACTIONS (5)
  - ANXIETY [None]
  - BLOOD CHOLESTEROL INCREASED [None]
  - GENERAL PHYSICAL HEALTH DETERIORATION [None]
  - HOSPITALISATION [None]
  - VISUAL IMPAIRMENT [None]
